FAERS Safety Report 10370827 (Version 1)
Quarter: 2014Q1

REPORT INFORMATION
  Report Type: Spontaneous
  Country: US (occurrence: None)
  Receive Date: 20140306
  Receipt Date: 20140306
  Transmission Date: 20141002
  Serious: Yes (Hospitalization)
  Sender: FDA-Public Use
  Company Number: 163-21880-13080968

PATIENT
  Age: 64 Year
  Sex: Female

DRUGS (1)
  1. REVLIMID (LENALIDOMIDE) (25 MILLIGRAM, CAPSULES) [Suspect]
     Indication: PLASMA CELL MYELOMA
     Dosage: 14 IN 21 D
     Route: 048
     Dates: start: 201305

REACTIONS (8)
  - Dizziness [None]
  - Asthenia [None]
  - Abdominal pain upper [None]
  - Nausea [None]
  - Dysgeusia [None]
  - Dry mouth [None]
  - Decreased appetite [None]
  - Infection [None]
